FAERS Safety Report 14012814 (Version 2)
Quarter: 2017Q4

REPORT INFORMATION
  Report Type: Spontaneous
  Country: MX (occurrence: MX)
  Receive Date: 20170926
  Receipt Date: 20171011
  Transmission Date: 20180321
  Serious: Yes (Death, Hospitalization, Other)
  Sender: FDA-Public Use
  Company Number: MX-ABBVIE-17S-107-2112851-00

PATIENT
  Sex: Female

DRUGS (1)
  1. VIEKIRA PAK [Suspect]
     Active Substance: DASABUVIR\OMBITASVIR\PARITAPREVIR\RITONAVIR
     Indication: HEPATITIS C
     Route: 048
     Dates: end: 20170920

REACTIONS (14)
  - Abdominal pain [Unknown]
  - Hernia [Unknown]
  - Death [Fatal]
  - Surgery [Unknown]
  - Nausea [Unknown]
  - Bilirubin conjugated increased [Unknown]
  - Cholelithiasis [Unknown]
  - Yellow skin [Unknown]
  - Jaundice [Unknown]
  - Hepatic encephalopathy [Unknown]
  - Laboratory test abnormal [Unknown]
  - Mesenteric artery thrombosis [Unknown]
  - Vomiting [Unknown]
  - Gastroenteritis [Unknown]
